FAERS Safety Report 9971568 (Version 1)
Quarter: 2014Q1

REPORT INFORMATION
  Report Type: Report from Study
  Country: US (occurrence: US)
  Receive Date: 20140306
  Receipt Date: 20140306
  Transmission Date: 20141002
  Serious: No
  Sender: FDA-Public Use
  Company Number: US-ABBVIE-13P-163-1150958-00

PATIENT
  Age: 33 Year
  Sex: Female

DRUGS (4)
  1. HUMIRA [Suspect]
     Indication: CROHN^S DISEASE
     Dates: start: 200901, end: 200903
  2. HUMIRA [Suspect]
     Dates: start: 20130824
  3. PREDNISONE [Concomitant]
     Indication: CROHN^S DISEASE
     Dosage: TAPERING OFF OF THIS COMPLETELY IN 1 WEEK
  4. ASACOL [Concomitant]
     Indication: CROHN^S DISEASE

REACTIONS (5)
  - Injection site pain [Recovering/Resolving]
  - Injection site erythema [Recovering/Resolving]
  - Injection site warmth [Recovering/Resolving]
  - Injection site urticaria [Recovering/Resolving]
  - Injection site pruritus [Recovering/Resolving]
